FAERS Safety Report 9218181 (Version 2)
Quarter: 2013Q2

REPORT INFORMATION
  Report Type: Spontaneous
  Country: CA (occurrence: CA)
  Receive Date: 20130408
  Receipt Date: 20130408
  Transmission Date: 20140414
  Serious: Yes (Other)
  Sender: FDA-Public Use
  Company Number: PHHY2013CA014935

PATIENT
  Sex: Female
  Weight: 79 kg

DRUGS (1)
  1. ANASTROZOLE [Suspect]
     Indication: BREAST CANCER
     Dosage: 1 MG, DAILY
     Route: 048
     Dates: start: 20121221

REACTIONS (2)
  - Diverticulitis [Unknown]
  - Nausea [Recovered/Resolved]
